FAERS Safety Report 11414089 (Version 1)
Quarter: 2015Q3

REPORT INFORMATION
  Report Type: Spontaneous
  Country: US (occurrence: US)
  Receive Date: 20150824
  Receipt Date: 20150824
  Transmission Date: 20151125
  Serious: Yes (Other)
  Sender: FDA-Public Use
  Company Number: US-MYLANLABS-2015M1027454

PATIENT

DRUGS (4)
  1. ONDANSETRON TABLETS, USP [Suspect]
     Active Substance: ONDANSETRON
     Indication: VOMITING
     Dosage: 8 MG, Q8H
     Route: 048
     Dates: start: 201410
  2. ONDANSETRON ORALLY DISINTEGRATING TABLETS, USP [Suspect]
     Active Substance: ONDANSETRON
     Indication: VOMITING
     Dosage: 8 MG, PRN IF VOMIT UP THE TABLET
     Route: 048
     Dates: start: 201507
  3. ONDANSETRON [Suspect]
     Active Substance: ONDANSETRON
     Indication: VOMITING
     Dosage: UNK UNK, PRN WHEN IN HOSPITAL
     Route: 040
  4. DILAUDID [Concomitant]
     Active Substance: HYDROMORPHONE HYDROCHLORIDE
     Indication: PAIN
     Dosage: UNK

REACTIONS (5)
  - Amnesia [Not Recovered/Not Resolved]
  - Urinary retention [Not Recovered/Not Resolved]
  - Hyperhidrosis [Not Recovered/Not Resolved]
  - Erythema [Not Recovered/Not Resolved]
  - Pyrexia [Not Recovered/Not Resolved]

NARRATIVE: CASE EVENT DATE: 201507
